FAERS Safety Report 24985960 (Version 1)
Quarter: 2025Q1

REPORT INFORMATION
  Report Type: Spontaneous
  Country: FR (occurrence: None)
  Receive Date: 20250219
  Receipt Date: 20250219
  Transmission Date: 20250409
  Serious: Yes (Hospitalization)
  Sender: ORION
  Company Number: None

PATIENT
  Age: 105 Year
  Sex: Female
  Weight: 65.4 kg

DRUGS (1)
  1. METHOTREXATE [Suspect]
     Active Substance: METHOTREXATE
     Indication: Arthralgia
     Dates: start: 20240701, end: 20240707

REACTIONS (9)
  - Overdose [Unknown]
  - Product prescribing error [Recovered/Resolved]
  - Inappropriate schedule of product administration [Unknown]
  - Rash papular [Recovering/Resolving]
  - Gastrointestinal disorder [Recovering/Resolving]
  - Pancytopenia [Recovering/Resolving]
  - Diverticulitis [Recovering/Resolving]
  - Mucosal inflammation [Recovering/Resolving]
  - Product use in unapproved indication [Unknown]

NARRATIVE: CASE EVENT DATE: 20240701
